FAERS Safety Report 11983978 (Version 1)
Quarter: 2016Q1

REPORT INFORMATION
  Report Type: Report from Study
  Country: US (occurrence: US)
  Receive Date: 20160201
  Receipt Date: 20160201
  Transmission Date: 20160526
  Serious: No
  Sender: FDA-Public Use
  Company Number: US-JNJFOC-20160118000

PATIENT
  Age: 25 Year
  Sex: Female
  Weight: 56.7 kg

DRUGS (4)
  1. PREDNISONE. [Concomitant]
     Active Substance: PREDNISONE
     Route: 065
  2. METHOTREXATE [Concomitant]
     Active Substance: METHOTREXATE
     Indication: CROHN^S DISEASE
     Route: 065
     Dates: start: 20151013
  3. STELARA [Suspect]
     Active Substance: USTEKINUMAB
     Indication: CROHN^S DISEASE
     Route: 058
     Dates: start: 20151013, end: 201511
  4. STELARA [Suspect]
     Active Substance: USTEKINUMAB
     Indication: CROHN^S DISEASE
     Dosage: FOLLOWING HER TWO LOADING DOSES AT ZERO AND FOUR WEEKS
     Route: 058
     Dates: start: 20150420, end: 20151013

REACTIONS (6)
  - Blood alkaline phosphatase increased [Unknown]
  - Drug ineffective for unapproved indication [Unknown]
  - Red blood cell sedimentation rate increased [Unknown]
  - Arthralgia [Not Recovered/Not Resolved]
  - C-reactive protein increased [Unknown]
  - Off label use [Unknown]

NARRATIVE: CASE EVENT DATE: 2015
